FAERS Safety Report 6888461-X (Version None)
Quarter: 2010Q3

REPORT INFORMATION
  Report Type: 
  Country: None (occurrence: None)
  Receive Date: 20100730
  Receipt Date: 20100728
  Transmission Date: 20110219
  Serious: Yes (Hospitalization)
  Sender: FDA-Public Use
  Company Number: US-WYE-H16192810

PATIENT
  Sex: Female

DRUGS (8)
  1. TORISEL [Suspect]
     Indication: RENAL CANCER METASTATIC
     Route: 042
     Dates: start: 20090817, end: 20100301
  2. TORISEL [Suspect]
     Route: 042
     Dates: start: 20100309
  3. VYTORIN [Concomitant]
  4. ASPIRIN [Concomitant]
  5. GLYCERYL TRINITRATE [Concomitant]
  6. NEXIUM [Concomitant]
  7. AVASTIN [Suspect]
     Indication: RENAL CANCER METASTATIC
     Dosage: UNKNOWN
     Route: 042
     Dates: start: 20100309
  8. TRICOR [Concomitant]

REACTIONS (2)
  - CHEST PAIN [None]
  - VENTRICULAR TACHYCARDIA [None]
